FAERS Safety Report 12625095 (Version 2)
Quarter: 2016Q3

REPORT INFORMATION
  Report Type: Spontaneous
  Country: US (occurrence: US)
  Receive Date: 20160805
  Receipt Date: 20160916
  Transmission Date: 20161109
  Serious: No
  Sender: FDA-Public Use
  Company Number: US-PFIZER INC-2016375244

PATIENT
  Age: 21 Year
  Sex: Male

DRUGS (1)
  1. IBRANCE [Suspect]
     Active Substance: PALBOCICLIB
     Indication: EPENDYMOMA
     Dosage: 125 MG, CYCLIC (ONCE DAILY, DAYS 1-21, REST DAYS 22-28 NO DRUG)
     Route: 048
     Dates: start: 20160524, end: 20160720

REACTIONS (3)
  - Disease progression [Not Recovered/Not Resolved]
  - Ependymoma [Not Recovered/Not Resolved]
  - Product use issue [Recovered/Resolved]

NARRATIVE: CASE EVENT DATE: 20160524
